FAERS Safety Report 20646685 (Version 1)
Quarter: 2022Q1

REPORT INFORMATION
  Report Type: Spontaneous
  Country: CN (occurrence: None)
  Receive Date: 20220329
  Receipt Date: 20220329
  Transmission Date: 20220424
  Serious: Yes (Death, Other)
  Sender: FDA-Public Use
  Company Number: CN-ROCHE-3054898

PATIENT
  Age: 44 Year
  Sex: Male

DRUGS (24)
  1. CAPECITABINE [Suspect]
     Active Substance: CAPECITABINE
     Indication: Colon cancer
     Dosage: FOR 2 CYCLES
     Route: 048
     Dates: start: 20200116, end: 20200208
  2. BEVACIZUMAB [Suspect]
     Active Substance: BEVACIZUMAB
     Indication: Colon cancer
     Dosage: FOR 3 CYCLES
     Route: 065
     Dates: start: 20190718, end: 20190725
  3. BEVACIZUMAB [Suspect]
     Active Substance: BEVACIZUMAB
     Dosage: OR 3 CYCLES
     Route: 065
     Dates: start: 20191028, end: 20191222
  4. BEVACIZUMAB [Suspect]
     Active Substance: BEVACIZUMAB
     Dosage: FOR 2 CYCLES
     Route: 065
     Dates: start: 20200116, end: 20200208
  5. CETUXIMAB [Concomitant]
     Active Substance: CETUXIMAB
     Indication: Colon cancer
     Dosage: FOR 9 CYCLES
     Dates: start: 20180629
  6. CETUXIMAB [Concomitant]
     Active Substance: CETUXIMAB
     Dosage: FOR 4 CYCLES
     Dates: start: 20190416, end: 20190625
  7. OXALIPLATIN [Concomitant]
     Active Substance: OXALIPLATIN
     Indication: Colon cancer
     Dosage: FOR 9 CYCLES
     Dates: start: 20180629
  8. OXALIPLATIN [Concomitant]
     Active Substance: OXALIPLATIN
     Dosage: FOR 3 CYCLES
     Dates: start: 20191028, end: 20191222
  9. LEUCOVORIN CALCIUM [Concomitant]
     Active Substance: LEUCOVORIN CALCIUM
     Indication: Colon cancer
     Dosage: FOR 9 CYCLES
     Dates: start: 20180629
  10. LEUCOVORIN CALCIUM [Concomitant]
     Active Substance: LEUCOVORIN CALCIUM
     Dosage: FOR 4 CYCLES
     Dates: start: 20190416, end: 20190625
  11. LEUCOVORIN CALCIUM [Concomitant]
     Active Substance: LEUCOVORIN CALCIUM
     Dosage: FOR 3 CYCLES
     Dates: start: 20190718, end: 20190925
  12. LEUCOVORIN CALCIUM [Concomitant]
     Active Substance: LEUCOVORIN CALCIUM
     Dosage: FOR 3 CYCLES
     Dates: start: 20191028, end: 20191222
  13. FLUOROURACIL [Concomitant]
     Active Substance: FLUOROURACIL
     Indication: Colon cancer
     Dosage: FOR 9 CYCLES
     Dates: start: 20180629
  14. FLUOROURACIL [Concomitant]
     Active Substance: FLUOROURACIL
     Dosage: FOR 4 CYCLES
     Dates: start: 20190416, end: 20190625
  15. FLUOROURACIL [Concomitant]
     Active Substance: FLUOROURACIL
     Dosage: FOR 3 CYCLES
     Dates: start: 20190718, end: 20190925
  16. FLUOROURACIL [Concomitant]
     Active Substance: FLUOROURACIL
     Dosage: FOR 3 CYCLES
     Dates: start: 20191028, end: 20191222
  17. IRINOTECAN [Concomitant]
     Active Substance: IRINOTECAN
     Indication: Colon cancer
     Dosage: FOR 3 CYCLES
     Dates: start: 20190718, end: 20190925
  18. IRINOTECAN [Concomitant]
     Active Substance: IRINOTECAN
     Dosage: FOR 3 CYCLES
     Dates: start: 20191028, end: 20191222
  19. PYROTINIB [Concomitant]
     Active Substance: PYROTINIB
     Indication: Colon cancer
     Dosage: FOR 2 CYCLES
     Dates: start: 20200116, end: 20200208
  20. CAMRELIZUMAB [Concomitant]
     Active Substance: CAMRELIZUMAB
     Indication: Colon cancer
     Dosage: FOR 4 CYCLES
     Dates: start: 20200407
  21. FRUQUINTINIB [Concomitant]
     Active Substance: FRUQUINTINIB
     Indication: Colon cancer
     Dosage: FOR 4 CYCLES
     Dates: start: 20200407
  22. OTERACIL POTASSIUM [Concomitant]
     Active Substance: OTERACIL POTASSIUM
     Indication: Colon cancer
     Dosage: FOR 4 CYCLES
     Dates: start: 20200407
  23. GIMERACIL [Concomitant]
     Active Substance: GIMERACIL
  24. TEGAFUR [Concomitant]
     Active Substance: TEGAFUR

REACTIONS (7)
  - Infection [Unknown]
  - Jaundice [Unknown]
  - Hepatic failure [Unknown]
  - Renal failure [Unknown]
  - Pneumonia [Unknown]
  - Biliary tract infection [Unknown]
  - Death [Fatal]

NARRATIVE: CASE EVENT DATE: 20201001
